FAERS Safety Report 11024583 (Version 1)
Quarter: 2015Q2

REPORT INFORMATION
  Report Type: Spontaneous
  Country: US (occurrence: None)
  Receive Date: 20150413
  Receipt Date: 20150413
  Transmission Date: 20150821
  Serious: Yes (Death, Hospitalization)
  Sender: FDA-Public Use
  Company Number: None

PATIENT
  Age: 18 Year
  Sex: Male
  Weight: 76.5 kg

DRUGS (1)
  1. MITOXANTRONE HYDROCHLORIDE. [Suspect]
     Active Substance: MITOXANTRONE HYDROCHLORIDE
     Dates: end: 20141125

REACTIONS (5)
  - Stress cardiomyopathy [None]
  - Cardiomyopathy [None]
  - Streptococcal sepsis [None]
  - Cerebrovascular accident [None]
  - Cardiac failure congestive [None]

NARRATIVE: CASE EVENT DATE: 20150404
